FAERS Safety Report 23737635 (Version 1)
Quarter: 2024Q2

REPORT INFORMATION
  Report Type: Spontaneous
  Country: TR (occurrence: TR)
  Receive Date: 20240412
  Receipt Date: 20240412
  Transmission Date: 20240716
  Serious: Yes (Life-Threatening, Other)
  Sender: FDA-Public Use
  Company Number: TR-BAXTER-2024BAX016434

PATIENT
  Age: 32 Year
  Sex: Male

DRUGS (4)
  1. SEVOFLURANE [Suspect]
     Active Substance: SEVOFLURANE
     Indication: General anaesthesia
     Dosage: 3 %
  2. REMIFENTANIL [Concomitant]
     Active Substance: REMIFENTANIL
     Indication: Sedative therapy
     Dosage: 0.5MG/KG
     Route: 065
  3. REMIFENTANIL [Concomitant]
     Active Substance: REMIFENTANIL
     Indication: Anaesthesia
     Dosage: 0.125 MG/KG/MIN
     Route: 065
  4. MIDAZOLAM [Concomitant]
     Active Substance: MIDAZOLAM
     Indication: Sedative therapy
     Dosage: 1 MG
     Route: 065

REACTIONS (4)
  - Pulmonary alveolar haemorrhage [Unknown]
  - Haemoptysis [Recovering/Resolving]
  - Bronchospasm [Unknown]
  - Hypoxia [Recovering/Resolving]
